FAERS Safety Report 9592496 (Version 2)
Quarter: 2013Q4

REPORT INFORMATION
  Report Type: Report from Study
  Country: US (occurrence: US)
  Receive Date: 20131004
  Receipt Date: 20131121
  Transmission Date: 20140711
  Serious: Yes (Hospitalization)
  Sender: FDA-Public Use
  Company Number: US-ROCHE-1283807

PATIENT
  Sex: Female

DRUGS (26)
  1. HERCEPTIN [Suspect]
     Indication: BREAST CANCER
     Route: 065
     Dates: start: 20080403
  2. HERCEPTIN [Suspect]
     Route: 065
     Dates: start: 20091008, end: 20100211
  3. HERCEPTIN [Suspect]
     Route: 065
     Dates: start: 20120124
  4. HERCEPTIN [Suspect]
     Route: 065
     Dates: start: 20120718
  5. PERJETA [Suspect]
     Indication: BREAST CANCER
     Route: 065
     Dates: start: 20120629
  6. DECADRON [Concomitant]
     Route: 065
  7. XGEVA [Concomitant]
  8. DOXORUBICIN HCL [Concomitant]
  9. TAXOTERE [Concomitant]
  10. NEULASTA [Concomitant]
     Route: 065
  11. PREDNISONE [Concomitant]
  12. ZOLOFT [Concomitant]
  13. DILAUDID [Concomitant]
  14. MS CONTIN [Concomitant]
     Route: 065
  15. NEURONTIN (UNITED STATES) [Concomitant]
  16. BDR SUPPOSITORIES [Concomitant]
  17. ATIVAN [Concomitant]
  18. LIDOCAINE [Concomitant]
  19. OXYGEN [Concomitant]
  20. ZOMETA [Concomitant]
  21. CARBOPLATIN [Concomitant]
  22. GEMZAR [Concomitant]
  23. LAPATINIB [Concomitant]
  24. NAVELBINE [Concomitant]
  25. AVASTIN [Concomitant]
     Route: 065
  26. XELODA [Concomitant]
     Route: 065

REACTIONS (26)
  - Hypoaesthesia [Unknown]
  - Gait disturbance [Unknown]
  - Anaemia [Unknown]
  - Metastases to central nervous system [Unknown]
  - Disease progression [Unknown]
  - Metastases to thorax [Unknown]
  - Fatigue [Unknown]
  - Lymphoedema [Unknown]
  - Pain in extremity [Unknown]
  - Haemorrhage [Unknown]
  - Nausea [Unknown]
  - Chest pain [Unknown]
  - Dyspnoea [Recovered/Resolved]
  - Monoplegia [Unknown]
  - Rash [Unknown]
  - Dysphonia [Unknown]
  - Diarrhoea [Unknown]
  - Incontinence [Unknown]
  - Myalgia [Unknown]
  - Alopecia [Unknown]
  - Hypoaesthesia [Unknown]
  - Neuropathy peripheral [Unknown]
  - Stomatitis [Unknown]
  - Arthralgia [Unknown]
  - Brachial plexopathy [Unknown]
  - Pleural effusion [Unknown]
